FAERS Safety Report 22230331 (Version 1)
Quarter: 2023Q2

REPORT INFORMATION
  Report Type: Report from Study
  Country: IT (occurrence: IT)
  Receive Date: 20230419
  Receipt Date: 20230419
  Transmission Date: 20230721
  Serious: Yes (Other)
  Sender: FDA-Public Use
  Company Number: IT-GILEAD-2023-0623617

PATIENT
  Age: 53 Year
  Sex: Female

DRUGS (1)
  1. EMTRICITABINE\RILPIVIRINE HYDROCHLORIDE\TENOFOVIR ALAFENAMIDE FUMARATE [Suspect]
     Active Substance: EMTRICITABINE\RILPIVIRINE HYDROCHLORIDE\TENOFOVIR ALAFENAMIDE FUMARATE
     Indication: HIV infection
     Dosage: 1 DOSAGE FORM, QD
     Route: 048

REACTIONS (30)
  - Neuropathy peripheral [Unknown]
  - Loss of personal independence in daily activities [Unknown]
  - Gait disturbance [Unknown]
  - Performance status decreased [Unknown]
  - Disturbance in attention [Unknown]
  - Pain [Unknown]
  - Asthenia [Unknown]
  - General physical condition abnormal [Unknown]
  - Disturbance in social behaviour [Unknown]
  - Middle insomnia [Unknown]
  - Hypersomnia [Unknown]
  - Dyspnoea [Unknown]
  - Initial insomnia [Unknown]
  - Nocturia [Unknown]
  - Cough [Unknown]
  - Snoring [Unknown]
  - Feeling hot [Unknown]
  - Pain [Unknown]
  - Sleep disorder [Unknown]
  - Fatigue [Unknown]
  - Somnolence [Unknown]
  - Insomnia [Unknown]
  - Depressed mood [Unknown]
  - Premature ageing [Unknown]
  - Rheumatic disorder [Unknown]
  - Hypertension [Unknown]
  - Blood cholesterol abnormal [Unknown]
  - Osteoarthritis [Unknown]
  - Menopause [Unknown]
  - Bronchitis [Unknown]
